FAERS Safety Report 8437772-5 (Version None)
Quarter: 2012Q2

REPORT INFORMATION
  Report Type: 
  Country: None (occurrence: None)
  Receive Date: 20120614
  Receipt Date: 20120403
  Transmission Date: 20120825
  Serious: No
  Sender: FDA-Public Use
  Company Number: US-AMGEN-USASP2012018473

PATIENT
  Age: 64 Year
  Sex: Male

DRUGS (3)
  1. AVODART [Concomitant]
     Dosage: UNK
  2. TRELSTAR [Concomitant]
     Dosage: UNK
  3. XGEVA [Suspect]
     Indication: METASTASES TO BONE
     Dosage: 120 MG, Q4WK
     Dates: start: 20111101

REACTIONS (1)
  - RASH ERYTHEMATOUS [None]
